FAERS Safety Report 7574994-X (Version None)
Quarter: 2011Q2

REPORT INFORMATION
  Report Type: 
  Country: None (occurrence: None)
  Receive Date: 20110627
  Receipt Date: 20110624
  Transmission Date: 20111010
  Serious: Yes (Other)
  Sender: FDA-Public Use
  Company Number: US-PFIZER INC-2011141236

PATIENT
  Sex: Female
  Weight: 63 kg

DRUGS (2)
  1. MACROBID [Concomitant]
     Indication: HYPERTENSION
     Dosage: 80 MG, 1X/DAY
  2. LIPITOR [Suspect]
     Indication: BLOOD CHOLESTEROL INCREASED
     Dosage: 40 MG, 1X/DAY
     Route: 048
     Dates: start: 19900101

REACTIONS (1)
  - GLAUCOMA [None]
